FAERS Safety Report 10179614 (Version 2)
Quarter: 2014Q2

REPORT INFORMATION
  Report Type: Spontaneous
  Country: US (occurrence: None)
  Receive Date: 20140515
  Receipt Date: 20140529
  Transmission Date: 20141212
  Serious: Yes (Hospitalization, Other)
  Sender: FDA-Public Use
  Company Number: CC14-0632

PATIENT
  Age: 65 Year
  Sex: Male
  Weight: 95.26 kg

DRUGS (5)
  1. CALCIPOTRIENE [Suspect]
     Indication: PSORIASIS
     Dosage: APPLY BID
     Dates: start: 2014, end: 20140425
  2. METFORMIN [Concomitant]
  3. LOPRESSOR [Concomitant]
  4. LISINOPRIL/HCTZ [Concomitant]
  5. GLUCOTROL [Concomitant]

REACTIONS (5)
  - Myalgia [None]
  - Dyspnoea [None]
  - Chest pain [None]
  - Coronary artery occlusion [None]
  - Myocardial infarction [None]
